FAERS Safety Report 11495249 (Version 1)
Quarter: 2015Q3

REPORT INFORMATION
  Report Type: Spontaneous
  Country: DE (occurrence: DE)
  Receive Date: 20150911
  Receipt Date: 20150911
  Transmission Date: 20151125
  Serious: Yes (Other)
  Sender: FDA-Public Use
  Company Number: DE-BIOGENIDEC-2015BI020055

PATIENT
  Age: 28 Year
  Sex: Female
  Weight: 69 kg

DRUGS (2)
  1. EUTHYROX [Concomitant]
     Active Substance: LEVOTHYROXINE SODIUM
     Indication: THYROID DISORDER
     Dates: start: 201402
  2. TECFIDERA [Suspect]
     Active Substance: DIMETHYL FUMARATE
     Indication: MULTIPLE SCLEROSIS
     Route: 048
     Dates: start: 20140221, end: 20141020

REACTIONS (2)
  - Maternal exposure during pregnancy [Recovered/Resolved]
  - Cephalo-pelvic disproportion [Unknown]

NARRATIVE: CASE EVENT DATE: 20150722
